FAERS Safety Report 10040668 (Version 1)
Quarter: 2014Q1

REPORT INFORMATION
  Report Type: Report from Study
  Country: ES (occurrence: ES)
  Receive Date: 20140327
  Receipt Date: 20140327
  Transmission Date: 20141002
  Serious: Yes (Hospitalization)
  Sender: FDA-Public Use
  Company Number: ES-ROCHE-1369594

PATIENT
  Age: 67 Year
  Sex: Female

DRUGS (1)
  1. CLONAZEPAM [Suspect]
     Indication: MENTAL DISABILITY
     Dosage: 60 TABLETS
     Route: 048
     Dates: start: 2012, end: 20130726

REACTIONS (1)
  - Dysphagia [Unknown]
